FAERS Safety Report 23193865 (Version 5)
Quarter: 2023Q4

REPORT INFORMATION
  Report Type: Spontaneous
  Country: BE (occurrence: BE)
  Receive Date: 20231116
  Receipt Date: 20231226
  Transmission Date: 20240109
  Serious: Yes (Hospitalization, Other)
  Sender: FDA-Public Use
  Company Number: BE-DSJP-DSJ-2023-144722

PATIENT
  Age: 49 Year
  Sex: Female

DRUGS (10)
  1. OLMESARTAN [Suspect]
     Active Substance: OLMESARTAN
     Indication: Hypertension
     Dosage: 40 MILLIGRAM, ONCE A DAY (40 MG 1CO/D)
     Route: 065
  2. OLMESARTAN [Suspect]
     Active Substance: OLMESARTAN
     Indication: Colitis microscopic
  3. LEVOTHYROXINE [Concomitant]
     Active Substance: LEVOTHYROXINE
     Indication: Hypothyroidism
     Dosage: 50 MICROGRAM, ONCE A DAY
     Route: 065
  4. LEVOTHYROXINE [Concomitant]
     Active Substance: LEVOTHYROXINE
     Indication: Colitis microscopic
  5. PANTOPRAZOLE [Concomitant]
     Active Substance: PANTOPRAZOLE
     Indication: Colitis microscopic
     Dosage: 40 MILLIGRAM, ONCE A DAY (40 MG 1CO/D)
     Route: 065
  6. BISOPROLOL [Concomitant]
     Active Substance: BISOPROLOL\BISOPROLOL FUMARATE
     Indication: Product used for unknown indication
     Dosage: 10 MILLIGRAM, DAILY (10 MG 1CO/D)
     Route: 065
  7. DOMPERIDONE [Concomitant]
     Active Substance: DOMPERIDONE
     Indication: Vomiting
     Dosage: UNK
     Route: 065
  8. CIPROFLOXACIN [Concomitant]
     Active Substance: CIPROFLOXACIN
     Indication: Evidence based treatment
     Dosage: 500 MILLIGRAM, TWO TIMES A DAY
     Route: 065
  9. BUTYLSCOPOLAMINE BROMIDE [Concomitant]
     Active Substance: BUTYLSCOPOLAMINE BROMIDE
     Indication: Abdominal pain
     Dosage: UNK
     Route: 065
  10. LOPERAMIDE [Concomitant]
     Active Substance: LOPERAMIDE
     Indication: Diarrhoea
     Dosage: UNK
     Route: 065

REACTIONS (7)
  - Colitis microscopic [Recovered/Resolved]
  - Gastrointestinal disorder [Recovered/Resolved]
  - Drug ineffective [Unknown]
  - Acute kidney injury [Unknown]
  - Cholestasis [Unknown]
  - Multisystem inflammatory syndrome [Unknown]
  - Hypokalaemia [Unknown]
